FAERS Safety Report 24660468 (Version 2)
Quarter: 2025Q1

REPORT INFORMATION
  Report Type: Spontaneous
  Country: US (occurrence: US)
  Receive Date: 20241125
  Receipt Date: 20250318
  Transmission Date: 20250408
  Serious: No
  Sender: SANDOZ
  Company Number: US-SANDOZ-SDZ2024US097582

PATIENT
  Sex: Male

DRUGS (2)
  1. HYRIMOZ [Suspect]
     Active Substance: ADALIMUMAB-ADAZ
     Indication: Skin disorder
     Dosage: 40 MG, Q2W
     Route: 058
     Dates: start: 20241118
  2. HYRIMOZ [Suspect]
     Active Substance: ADALIMUMAB-ADAZ
     Indication: Skin disorder
     Dosage: 40 MG, Q2W
     Route: 058
     Dates: start: 20241118

REACTIONS (2)
  - Drug dose omission by device [Unknown]
  - Device issue [Unknown]
